FAERS Safety Report 9911274 (Version 1)
Quarter: 2014Q1

REPORT INFORMATION
  Report Type: Report from Study
  Country: US (occurrence: US)
  Receive Date: 20140219
  Receipt Date: 20140219
  Transmission Date: 20141002
  Serious: Yes (Hospitalization, Other)
  Sender: FDA-Public Use
  Company Number: US-GILEAD-2014-0094223

PATIENT
  Age: 80 Year
  Sex: Male
  Weight: 97.96 kg

DRUGS (14)
  1. RANOLAZINE [Suspect]
     Indication: ANGINA PECTORIS
     Dosage: 1000 MG, BID
     Route: 048
     Dates: start: 20131231, end: 20140125
  2. RANOLAZINE [Interacting]
     Dosage: 1000 MG, BID
     Route: 048
     Dates: start: 20140201
  3. KETOCONAZOLE [Interacting]
     Dosage: 200 MG, TID
     Route: 065
     Dates: start: 20140121, end: 20140125
  4. ATORVASTATIN [Interacting]
     Dosage: 20 MG, QD
     Route: 048
     Dates: end: 20140125
  5. BICALUTAMIDE [Concomitant]
     Dosage: UNK
  6. CYCLOBENZAPRINE [Concomitant]
     Indication: PAIN
  7. LANTUS [Concomitant]
  8. LEVOTHYROXINE [Concomitant]
  9. MAGNESIUM OXIDE [Concomitant]
  10. METOPROLOL TARTRATE [Concomitant]
  11. OXYCODONE / ACETAMINOPHEN [Concomitant]
  12. PREDNISONE [Concomitant]
  13. VITAMIN A                          /00056001/ [Concomitant]
  14. WARFARIN [Concomitant]

REACTIONS (1)
  - Rhabdomyolysis [Recovered/Resolved]
